FAERS Safety Report 7823499-7 (Version None)
Quarter: 2011Q4

REPORT INFORMATION
  Report Type: 
  Country: None (occurrence: None)
  Receive Date: 20111019
  Receipt Date: 20111012
  Transmission Date: 20120403
  Serious: Yes (Death, Other)
  Sender: FDA-Public Use
  Company Number: IN-PFIZER INC-2006096263

PATIENT
  Age: 42 Year
  Sex: Female
  Weight: 70 kg

DRUGS (3)
  1. ONDASETRON [Concomitant]
     Route: 048
     Dates: start: 20060724, end: 20060726
  2. LOPERAMIDE HCL [Concomitant]
     Route: 048
     Dates: start: 20060724, end: 20060728
  3. SUNITINIB MALATE [Suspect]
     Indication: GASTROINTESTINAL STROMAL TUMOUR
     Dosage: 50 MG, 1X/DAY
     Route: 048
     Dates: start: 20060720

REACTIONS (2)
  - SUDDEN DEATH [None]
  - RASH [None]
